FAERS Safety Report 22345465 (Version 1)
Quarter: 2023Q2

REPORT INFORMATION
  Report Type: Spontaneous
  Country: US (occurrence: US)
  Receive Date: 20230519
  Receipt Date: 20230519
  Transmission Date: 20230722
  Serious: No
  Sender: FDA-Public Use
  Company Number: US-TEVA-2023-US-2889871

PATIENT
  Sex: Female

DRUGS (1)
  1. OXYTROL FOR WOMEN [Suspect]
     Active Substance: OXYBUTYNIN
     Indication: Product used for unknown indication
     Dosage: 3.9MG/D 8, PATCH
     Route: 065

REACTIONS (2)
  - Administration site pain [Unknown]
  - Drug ineffective [Unknown]
